FAERS Safety Report 9419744 (Version 4)
Quarter: 2013Q4

REPORT INFORMATION
  Report Type: Report from Study
  Country: FR (occurrence: FR)
  Receive Date: 20130725
  Receipt Date: 20131108
  Transmission Date: 20140711
  Serious: Yes (Other)
  Sender: FDA-Public Use
  Company Number: FR-PFIZER INC-2013210359

PATIENT
  Age: 53 Year
  Sex: Female

DRUGS (10)
  1. CYTARABINE [Suspect]
     Indication: LEUKAEMIA
     Dosage: 200 MG/M2 DAILY, FROM DAY 1 TO DAY 7 INDUCTION
     Dates: start: 20100409
  2. CYTARABINE [Suspect]
     Dosage: 1000 MG/M2, 2X/DAY FROM DAY 1 TO DAY 7 MINI-CONSOLIDATION
     Dates: start: 20100528
  3. CYTARABINE [Suspect]
     Dosage: 1000 MG/M2, 2X/DAY FROM DAY 1 TO DAY 5, INTENSIVE CONSOLIDATION 1
     Dates: start: 20100609
  4. CYTARABINE [Suspect]
     Dosage: 1820 MG (1000 MG/M2), 2X/DAY, ON DAS 1-5, INTENSIVE CONSOLIDATION 2
     Route: 042
     Dates: start: 20100824, end: 20100828
  5. MYLOTARG [Suspect]
     Indication: LEUKAEMIA
     Dosage: 6 MG/M2, INDUCTION DAY 4
     Dates: start: 20100409
  6. MYLOTARG [Suspect]
     Dosage: 6 MG/M2, INTENSIVE CONSOLIDATION ON DAY 4
     Dates: start: 20100609
  7. MITOXANTRONE HYDROCHLORIDE [Suspect]
     Indication: LEUKAEMIA
     Dosage: 12 MG/M2, DAILY ON DAY 1 AND DAY 2, INTENSIVE CONSOLIDATION 1
     Dates: start: 20100609
  8. MITOXANTRONE HYDROCHLORIDE [Suspect]
     Dosage: 23 MG (12MG/M2), DAILY, ON DAY 1 AND DAY 2, INTENSIVE CONSOLIDATION 2
     Route: 042
     Dates: start: 20100824, end: 20100825
  9. DAUNORUBICIN [Suspect]
     Indication: LEUKAEMIA
     Dosage: 60 MG/M2, INDUCTION DAILY FROM DAY 1 TO DAY 3
     Dates: start: 20100409
  10. DAUNORUBICIN [Suspect]
     Dosage: 60 MG/M2, MINI-CONSOLIDATION 1 DAILY ON DAY 1 AND DAY 2
     Dates: start: 20100528

REACTIONS (3)
  - Device related infection [Recovered/Resolved]
  - Pseudomonal sepsis [Recovered/Resolved]
  - Pneumocystis jirovecii pneumonia [Recovered/Resolved]
